FAERS Safety Report 8845710 (Version 1)
Quarter: 2012Q4

REPORT INFORMATION
  Report Type: 
  Country: US (occurrence: US)
  Receive Date: 20121017
  Receipt Date: 20121017
  Transmission Date: 20130627
  Serious: No
  Sender: FDA-Public Use
  Company Number: US-009507513-1210USA003281

PATIENT
  Age: 21 Year
  Sex: Female
  Weight: 50.79 kg

DRUGS (1)
  1. NUVARING [Suspect]
     Indication: ENDOMETRIOSIS
     Dosage: 3 weeks in, 1 week out
     Route: 067
     Dates: start: 20120911, end: 20120921

REACTIONS (5)
  - Unintended pregnancy [Unknown]
  - Nausea [Unknown]
  - Breast tenderness [Unknown]
  - Increased appetite [Unknown]
  - Off label use [Unknown]
